FAERS Safety Report 4811241-3 (Version None)
Quarter: 2005Q4

REPORT INFORMATION
  Report Type: 
  Country: None (occurrence: None)
  Receive Date: 20051027
  Receipt Date: 20050719
  Transmission Date: 20060501
  Serious: No
  Sender: FDA-Public Use
  Company Number: BR-MERCK-0507BRA00045B1

PATIENT
  Age: -26 Day
  Weight: 3 kg

DRUGS (2)
  1. ALDOMET [Suspect]
     Indication: HYPERTENSION
     Dates: start: 20050715, end: 20050901
  2. ALDOMET [Suspect]
     Dates: start: 20050901

REACTIONS (1)
  - DRUG EXPOSURE DURING PREGNANCY [None]
